FAERS Safety Report 7149556-9 (Version None)
Quarter: 2010Q4

REPORT INFORMATION
  Report Type: 
  Country: None (occurrence: None)
  Receive Date: 20101209
  Receipt Date: 20101129
  Transmission Date: 20110411
  Serious: Yes (Other)
  Sender: FDA-Public Use
  Company Number: CA-CELGENEUS-028-C5013-10113187

PATIENT
  Sex: Female
  Weight: 72 kg

DRUGS (16)
  1. CC-5013 [Suspect]
     Route: 048
     Dates: start: 20100615
  2. CC-5013 [Suspect]
     Route: 048
     Dates: start: 20101102, end: 20101129
  3. CC-5013 [Suspect]
     Route: 048
     Dates: start: 20101130
  4. ADALAT [Concomitant]
     Indication: HYPERTENSION
     Route: 048
     Dates: start: 19950101
  5. LOZIDE [Concomitant]
     Indication: HYPERTENSION
     Route: 048
     Dates: start: 19950101
  6. SYNTHROID [Concomitant]
     Indication: HYPOTHYROIDISM
     Route: 048
     Dates: start: 19900101
  7. NOVASEN [Concomitant]
     Indication: CARDIOVASCULAR EVENT PROPHYLAXIS
     Route: 048
     Dates: start: 20000101
  8. ACETAMINOPHEN [Concomitant]
     Indication: PYREXIA
     Route: 048
     Dates: start: 20100618, end: 20100620
  9. CIPRO [Concomitant]
     Indication: URINARY TRACT INFECTION
     Route: 048
     Dates: start: 20100621, end: 20100625
  10. CIPRO [Concomitant]
     Route: 048
     Dates: start: 20101119, end: 20101123
  11. PROCHLORPERAZINE [Concomitant]
     Indication: NAUSEA
     Route: 048
     Dates: start: 20100618
  12. RED BLOOD CELLS [Concomitant]
     Indication: ANAEMIA
     Dosage: 2 BAGS
     Route: 051
     Dates: start: 20100622, end: 20100622
  13. ALLOPURINOL [Concomitant]
     Indication: PROPHYLAXIS
     Route: 048
     Dates: start: 20100612
  14. ALLOPURINOL [Concomitant]
     Route: 048
     Dates: start: 20101026
  15. LIPITOR [Concomitant]
     Indication: HYPERCHOLESTEROLAEMIA
     Dates: start: 20101102
  16. LOPERAMIDE [Concomitant]
     Indication: DIARRHOEA
     Route: 048
     Dates: start: 20101009

REACTIONS (2)
  - MACULOPATHY [None]
  - RETINAL VEIN OCCLUSION [None]
